FAERS Safety Report 7524989-7 (Version None)
Quarter: 2011Q2

REPORT INFORMATION
  Report Type: 
  Country: None (occurrence: None)
  Receive Date: 20110606
  Receipt Date: 20110527
  Transmission Date: 20111010
  Serious: Yes (Other)
  Sender: FDA-Public Use
  Company Number: JP-ASTELLAS-2011JP003568

PATIENT
  Age: 6 Year
  Sex: Male

DRUGS (4)
  1. PREDNISOLONE [Concomitant]
     Indication: IMMUNOSUPPRESSANT DRUG THERAPY
     Route: 065
  2. PROGRAF [Suspect]
     Indication: IMMUNOSUPPRESSANT DRUG THERAPY
     Route: 042
  3. PROGRAF [Suspect]
     Dosage: UNK
     Route: 042
  4. PROGRAF [Suspect]
     Route: 048

REACTIONS (2)
  - ACUTE GRAFT VERSUS HOST DISEASE IN INTESTINE [None]
  - DRUG INEFFECTIVE [None]
